FAERS Safety Report 22183975 (Version 1)
Quarter: 2023Q2

REPORT INFORMATION
  Report Type: Report from Study
  Country: PR (occurrence: PR)
  Receive Date: 20230407
  Receipt Date: 20230407
  Transmission Date: 20230721
  Serious: Yes (Other)
  Sender: FDA-Public Use
  Company Number: PR-ABBVIE-4718473

PATIENT
  Sex: Female
  Weight: 81.646 kg

DRUGS (3)
  1. HUMIRA [Suspect]
     Active Substance: ADALIMUMAB
     Indication: Rheumatoid arthritis
     Dosage: 40MG/0.8ML?START DATE TEXT: OVER 8 YEARS?STOP DATE TEXT: OVER 8 YEARS
     Route: 058
  2. TOZINAMERAN [Concomitant]
     Active Substance: TOZINAMERAN
     Indication: COVID-19
     Dosage: 1ST DOSE?ONE IN ONCE
     Route: 030
     Dates: start: 20210807, end: 20210807
  3. TOZINAMERAN [Concomitant]
     Active Substance: TOZINAMERAN
     Indication: COVID-19
     Dosage: 2ND DOSE?ONE IN ONCE
     Route: 030
     Dates: start: 20210826, end: 20210826

REACTIONS (6)
  - Infarction [Recovering/Resolving]
  - Tachycardia [Not Recovered/Not Resolved]
  - Hypertension [Recovering/Resolving]
  - Chest pain [Recovering/Resolving]
  - Diarrhoea [Recovering/Resolving]
  - Thyroid disorder [Not Recovered/Not Resolved]

NARRATIVE: CASE EVENT DATE: 20230301
